FAERS Safety Report 5642511-7 (Version None)
Quarter: 2008Q1

REPORT INFORMATION
  Report Type: 
  Country: None (occurrence: None)
  Receive Date: 20080227
  Receipt Date: 20080227
  Transmission Date: 20080703
  Serious: No
  Sender: FDA-Public Use
  Company Number: None

PATIENT
  Sex: Female

DRUGS (8)
  1. ACTONEL [Suspect]
     Indication: OSTEOPENIA
     Dosage: 35 MG WEEKLY ORAL
     Route: 048
     Dates: start: 20021001, end: 20070301
  2. PLAVIX [Concomitant]
  3. LISINOPRIL [Concomitant]
  4. ASPIRIN [Concomitant]
  5. XANAX [Concomitant]
  6. CLIMARA [Concomitant]
  7. DARVOCET [Concomitant]
  8. GABAPENTIN [Concomitant]

REACTIONS (1)
  - BONE DISORDER [None]
